FAERS Safety Report 5821686-0 (Version None)
Quarter: 2008Q3

REPORT INFORMATION
  Report Type: 
  Country: None (occurrence: None)
  Receive Date: 20080714
  Receipt Date: 20071121
  Transmission Date: 20090109
  Serious: Yes (Hospitalization)
  Sender: FDA-Public Use
  Company Number: 532763

PATIENT
  Age: 79 Year
  Sex: Female

DRUGS (2)
  1. BONIVA [Suspect]
     Indication: OSTEOPOROSIS
     Dosage: 150 MG ORAL
     Route: 048
     Dates: start: 20050301, end: 20060201
  2. CALCIUM NOS (CALCIUM) [Concomitant]

REACTIONS (1)
  - DYSPHAGIA [None]
